FAERS Safety Report 4477753-X (Version None)
Quarter: 2004Q4

REPORT INFORMATION
  Report Type: 
  Country: None (occurrence: None)
  Receive Date: 20041014
  Receipt Date: 20041008
  Transmission Date: 20050328
  Serious: No
  Sender: FDA-Public Use
  Company Number: TAP2004Q01126

PATIENT
  Age: 74 Year
  Sex: Female

DRUGS (5)
  1. PREVACID [Suspect]
     Dosage: 30 MG, 1 IN 1 D, PER ORAL
     Route: 048
     Dates: start: 20040812
  2. HYZAAR [Concomitant]
  3. ALLOPURINOL [Concomitant]
  4. FOSAMAX [Concomitant]
  5. CHOLESTEROL MEDICATION (CHOLESTEROL MEDICATION) [Concomitant]

REACTIONS (5)
  - ABNORMAL SENSATION IN EYE [None]
  - CORNEAL ABRASION [None]
  - EYE REDNESS [None]
  - MEDICATION ERROR [None]
  - PHOTOSENSITIVITY REACTION [None]
